FAERS Safety Report 21125108 (Version 1)
Quarter: 2022Q3

REPORT INFORMATION
  Report Type: Spontaneous
  Country: US (occurrence: None)
  Receive Date: 20220723
  Receipt Date: 20220723
  Transmission Date: 20221027
  Serious: No
  Sender: FDA-Public Use
  Company Number: None

PATIENT
  Age: 81 Year
  Sex: Female

DRUGS (1)
  1. TEMOZOLOMIDE [Suspect]
     Active Substance: TEMOZOLOMIDE
     Dosage: OTHER FREQUENCY : UNKNOWN;?
     Route: 048

REACTIONS (3)
  - Therapy interrupted [None]
  - Pulmonary oedema [None]
  - Oedema peripheral [None]

NARRATIVE: CASE EVENT DATE: 20220723
